FAERS Safety Report 15106881 (Version 4)
Quarter: 2019Q4

REPORT INFORMATION
  Report Type: Spontaneous
  Country: US (occurrence: US)
  Receive Date: 20180704
  Receipt Date: 20191219
  Transmission Date: 20200122
  Serious: No
  Sender: FDA-Public Use
  Company Number: US-SA-2018SA178684

PATIENT
  Age: 42 Year
  Sex: Male
  Weight: 90.7 kg

DRUGS (2)
  1. FABRAZYME [Suspect]
     Active Substance: AGALSIDASE BETA
     Indication: FABRY^S DISEASE
     Dosage: 105 MG, QOW
     Route: 041
     Dates: start: 20180213
  2. FABRAZYME [Suspect]
     Active Substance: AGALSIDASE BETA
     Indication: RENAL TRANSPLANT

REACTIONS (2)
  - Incorrect dose administered [Unknown]
  - Product dose omission [Unknown]
